FAERS Safety Report 14046078 (Version 2)
Quarter: 2017Q4

REPORT INFORMATION
  Report Type: Spontaneous
  Country: PL (occurrence: PL)
  Receive Date: 20171005
  Receipt Date: 20171009
  Transmission Date: 20180321
  Serious: Yes (Life-Threatening, Hospitalization, Other)
  Sender: FDA-Public Use
  Company Number: PL-TEVA-811845ISR

PATIENT
  Age: 34 Year
  Sex: Female

DRUGS (2)
  1. LEVOXA [Suspect]
     Active Substance: LEVOFLOXACIN
     Dosage: 250 MILLIGRAM DAILY; 0.5 OF TABLET 500 MG
     Route: 048
     Dates: start: 20170918, end: 20170918
  2. LEVOXA [Suspect]
     Active Substance: LEVOFLOXACIN
     Dosage: 250 MILLIGRAM DAILY; 0.5 OF TABLET 500 MG
     Route: 048
     Dates: start: 20170925, end: 20170925

REACTIONS (10)
  - Pharyngeal oedema [Recovered/Resolved]
  - Heart rate decreased [Recovered/Resolved]
  - Malaise [Recovered/Resolved]
  - Feeling hot [Recovered/Resolved]
  - Dyspnoea [Recovered/Resolved]
  - Hyperhidrosis [Recovered/Resolved]
  - Hypoaesthesia [Recovered/Resolved]
  - Tachycardia [Recovered/Resolved]
  - Vision blurred [Recovered/Resolved]
  - Syncope [Recovered/Resolved]

NARRATIVE: CASE EVENT DATE: 20170918
